FAERS Safety Report 24985077 (Version 1)
Quarter: 2025Q1

REPORT INFORMATION
  Report Type: Spontaneous
  Country: US (occurrence: None)
  Receive Date: 20250218
  Receipt Date: 20250218
  Transmission Date: 20250409
  Serious: Yes (Hospitalization)
  Sender: FDA-CTU
  Company Number: None

PATIENT
  Age: 64 Year

DRUGS (15)
  1. BIKTARVY [Suspect]
     Active Substance: BICTEGRAVIR SODIUM\EMTRICITABINE\TENOFOVIR ALAFENAMIDE FUMARATE
     Indication: HIV test positive
     Dosage: FREQUENCY : DAILY;?
     Route: 048
  2. PRALUENT [Suspect]
     Active Substance: ALIROCUMAB
     Indication: Hyperlipidaemia
     Route: 058
  3. ASPIRIN [Concomitant]
     Active Substance: ASPIRIN
  4. FELODIPINE [Concomitant]
     Active Substance: FELODIPINE
  5. CLONIDINE [Concomitant]
     Active Substance: CLONIDINE
  6. NOVOLIN N FLEXERIL [Concomitant]
  7. VITAMIN D [Concomitant]
     Active Substance: VITAMIN D NOS
  8. VASCEPA [Concomitant]
     Active Substance: ICOSAPENT ETHYL
  9. LIPITOR [Concomitant]
     Active Substance: ATORVASTATIN CALCIUM
  10. COREG [Concomitant]
     Active Substance: CARVEDILOL
  11. TORSEMIDE [Concomitant]
     Active Substance: TORSEMIDE
  12. ALLOPURINOL [Concomitant]
     Active Substance: ALLOPURINOL
  13. FOSFOMYCIN [Concomitant]
     Active Substance: FOSFOMYCIN
  14. FIASP FLEX PEN [Concomitant]
  15. MEDDROL [Concomitant]

REACTIONS (2)
  - Myocardial infarction [None]
  - Coma [None]

NARRATIVE: CASE EVENT DATE: 20250212
